FAERS Safety Report 23164867 (Version 1)
Quarter: 2023Q4

REPORT INFORMATION
  Report Type: Spontaneous
  Country: US (occurrence: None)
  Receive Date: 20231108
  Receipt Date: 20231108
  Transmission Date: 20240110
  Serious: Yes (Disabling)
  Sender: FDA-Public Use
  Company Number: None

PATIENT
  Age: 43 Year
  Sex: Female
  Weight: 67.5 kg

DRUGS (6)
  1. BENZONATATE [Suspect]
     Active Substance: BENZONATATE
     Indication: Cough
     Dosage: OTHER QUANTITY : 2 CAPSULE(S);?FREQUENCY : EVERY 8 HOURS;?
     Route: 048
     Dates: start: 20231031, end: 20231108
  2. BENZONATATE [Suspect]
     Active Substance: BENZONATATE
     Indication: Bronchitis
  3. HYDROCHLOROTHIAZIDE [Concomitant]
     Active Substance: HYDROCHLOROTHIAZIDE
  4. VENTOLIN [Concomitant]
     Active Substance: ALBUTEROL SULFATE
  5. DOXYCYCLINE [Concomitant]
     Active Substance: DOXYCYCLINE
  6. MUCINEX DM [Concomitant]
     Active Substance: DEXTROMETHORPHAN HYDROBROMIDE\GUAIFENESIN

REACTIONS (3)
  - Muscular weakness [None]
  - Gait inability [None]
  - Dysstasia [None]

NARRATIVE: CASE EVENT DATE: 20231107
